FAERS Safety Report 15301266 (Version 3)
Quarter: 2018Q3

REPORT INFORMATION
  Report Type: Report from Study
  Country: KR (occurrence: KR)
  Receive Date: 20180821
  Receipt Date: 20180907
  Transmission Date: 20181010
  Serious: Yes (Death, Hospitalization, Other)
  Sender: FDA-Public Use
  Company Number: KR-B.I. PHARMACEUTICALS,INC./RIDGEFIELD-2018-BI-041252

PATIENT
  Age: 76 Year
  Sex: Male
  Weight: 52.4 kg

DRUGS (38)
  1. GILOTRIF [Suspect]
     Active Substance: AFATINIB
     Indication: NON-SMALL CELL LUNG CANCER
     Route: 048
     Dates: start: 20160428, end: 20160508
  2. DICHLOZID [Concomitant]
     Indication: CHRONIC KIDNEY DISEASE
     Route: 065
     Dates: end: 20160914
  3. DILATREND [Concomitant]
     Active Substance: CARVEDILOL
     Route: 065
     Dates: start: 20160424, end: 20160711
  4. GILOTRIF [Suspect]
     Active Substance: AFATINIB
     Route: 048
     Dates: start: 20160609, end: 20160914
  5. DILATREND [Concomitant]
     Active Substance: CARVEDILOL
     Indication: HYPERTENSION
     Route: 065
     Dates: start: 20151203, end: 20160416
  6. DIAMICRON [Concomitant]
     Active Substance: GLICLAZIDE
     Route: 065
     Dates: start: 20160919, end: 20160928
  7. SIGMART [Concomitant]
     Active Substance: NICORANDIL
     Route: 065
     Dates: start: 20160424, end: 20160914
  8. ACTOS [Concomitant]
     Active Substance: PIOGLITAZONE HYDROCHLORIDE
     Indication: DIABETES MELLITUS
     Route: 065
     Dates: start: 20150202, end: 20160914
  9. ACTOS [Concomitant]
     Active Substance: PIOGLITAZONE HYDROCHLORIDE
     Route: 065
     Dates: start: 20160919
  10. ASPIRIN. [Concomitant]
     Active Substance: ASPIRIN
     Indication: HYPERTENSION
     Route: 065
     Dates: end: 20160403
  11. BERASIL [Concomitant]
     Active Substance: BERAPROST
     Indication: HYPERTENSION
     Route: 065
     Dates: end: 20160416
  12. BERASIL [Concomitant]
     Active Substance: BERAPROST
     Route: 065
     Dates: start: 20160424, end: 20160914
  13. BERASIL [Concomitant]
     Active Substance: BERAPROST
     Route: 065
     Dates: start: 20161008, end: 20161101
  14. GILOTRIF [Suspect]
     Active Substance: AFATINIB
     Route: 048
     Dates: start: 20160509, end: 20160524
  15. GILOTRIF [Suspect]
     Active Substance: AFATINIB
     Route: 048
     Dates: start: 20161019, end: 20170222
  16. SIGMART [Concomitant]
     Active Substance: NICORANDIL
     Route: 065
     Dates: start: 20160919
  17. TRAJENTA [Concomitant]
     Active Substance: LINAGLIPTIN
     Route: 065
     Dates: start: 20160919
  18. PANTOLINE [Concomitant]
     Active Substance: PANTOPRAZOLE SODIUM
     Indication: PAIN PROPHYLAXIS
     Route: 065
     Dates: start: 20160915, end: 20160918
  19. ASPIRIN. [Concomitant]
     Active Substance: ASPIRIN
     Route: 065
     Dates: start: 20161008, end: 20161101
  20. TRAJENTA [Concomitant]
     Active Substance: LINAGLIPTIN
     Indication: DIABETES MELLITUS
     Route: 065
     Dates: start: 20150105, end: 20160914
  21. ULCERMIN [Concomitant]
     Active Substance: SUCRALFATE
     Route: 065
     Dates: start: 20160920, end: 20160930
  22. DICHLOZID [Concomitant]
     Route: 065
     Dates: start: 20160919
  23. ULCERMIN [Concomitant]
     Active Substance: SUCRALFATE
     Indication: PAIN PROPHYLAXIS
     Route: 065
     Dates: start: 20160915, end: 20160916
  24. ASPIRIN. [Concomitant]
     Active Substance: ASPIRIN
     Route: 065
     Dates: start: 20160404, end: 20160404
  25. DILATREND [Concomitant]
     Active Substance: CARVEDILOL
     Route: 065
     Dates: start: 20160712, end: 20160914
  26. SIGMART [Concomitant]
     Active Substance: NICORANDIL
     Indication: HYPERTENSION
     Route: 065
     Dates: end: 20160416
  27. SMOFKABIVEN PERIPHERAL [Concomitant]
     Indication: PARENTERAL NUTRITION
     Route: 065
     Dates: start: 20160915, end: 20160918
  28. BISACODYL. [Concomitant]
     Active Substance: BISACODYL
     Route: 065
     Dates: start: 20161019, end: 20161101
  29. ASPIRIN. [Concomitant]
     Active Substance: ASPIRIN
     Route: 065
     Dates: start: 20160406, end: 20160416
  30. ASPIRIN. [Concomitant]
     Active Substance: ASPIRIN
     Route: 065
     Dates: start: 20160921, end: 20161004
  31. DIAMICRON [Concomitant]
     Active Substance: GLICLAZIDE
     Indication: DIABETES MELLITUS
     Route: 065
     Dates: start: 20160728, end: 20160915
  32. ULCERMIN [Concomitant]
     Active Substance: SUCRALFATE
     Indication: GASTRIC ULCER
     Route: 065
     Dates: start: 20160919, end: 20160919
  33. DILATREND [Concomitant]
     Active Substance: CARVEDILOL
     Route: 065
     Dates: start: 20160919
  34. DIAMICRON [Concomitant]
     Active Substance: GLICLAZIDE
     Route: 065
     Dates: start: 20160929, end: 20161101
  35. BISACODYL. [Concomitant]
     Active Substance: BISACODYL
     Indication: CONSTIPATION
     Route: 065
     Dates: start: 20160331, end: 20160406
  36. BISACODYL. [Concomitant]
     Active Substance: BISACODYL
     Route: 065
     Dates: start: 20160929, end: 20161002
  37. ASPIRIN. [Concomitant]
     Active Substance: ASPIRIN
     Route: 065
     Dates: start: 20160424, end: 20160914
  38. BERASIL [Concomitant]
     Active Substance: BERAPROST
     Route: 065
     Dates: start: 20160921, end: 20161002

REACTIONS (4)
  - Malignant neoplasm progression [Fatal]
  - Dizziness [Recovered/Resolved]
  - Anaemia [Recovered/Resolved]
  - Gastric cancer [Fatal]

NARRATIVE: CASE EVENT DATE: 20160915
